FAERS Safety Report 8633955 (Version 3)
Quarter: 2012Q4

REPORT INFORMATION
  Report Type: Report from Study
  Country: CA (occurrence: CA)
  Receive Date: 20120626
  Receipt Date: 20121214
  Transmission Date: 20130627
  Serious: Yes (Hospitalization)
  Sender: FDA-Public Use
  Company Number: CA-BRISTOL-MYERS SQUIBB COMPANY-16689234

PATIENT
  Age: 36 Year
  Sex: Male
  Weight: 111 kg

DRUGS (15)
  1. ORENCIA [Suspect]
     Indication: PSORIATIC ARTHROPATHY
     Dosage: 37 infusions,last infusion:24May2012
     Route: 042
     Dates: start: 20090824
  2. ISONIAZID [Concomitant]
  3. FOSAMAX [Concomitant]
  4. NEXIUM [Concomitant]
  5. ALTACE [Concomitant]
  6. SALAZOPYRIN [Concomitant]
  7. CALCIUM [Concomitant]
  8. ARAVA [Concomitant]
  9. CYCLOBENZAPRINE [Concomitant]
  10. PLAQUENIL [Concomitant]
  11. PREDNISONE [Concomitant]
  12. NAPROSYN [Concomitant]
  13. DOCUSATE [Concomitant]
  14. MYOCHRYSINE [Concomitant]
  15. SORIATANE [Concomitant]
     Dosage: Soriatane Dovobet

REACTIONS (5)
  - Nephrolithiasis [Unknown]
  - Cystitis [Unknown]
  - Bronchitis [Recovered/Resolved]
  - Nasopharyngitis [Unknown]
  - Myalgia [Unknown]
